FAERS Safety Report 6804316-0 (Version None)
Quarter: 2010Q2

REPORT INFORMATION
  Report Type: 
  Country: None (occurrence: None)
  Receive Date: 20100628
  Receipt Date: 20070216
  Transmission Date: 20101027
  Serious: No
  Sender: FDA-Public Use
  Company Number: US-PFIZER INC-2007013202

PATIENT
  Age: 61 Year
  Sex: Female

DRUGS (9)
  1. GEODON [Suspect]
  2. TRAZODONE HCL [Suspect]
  3. SEROQUEL [Suspect]
  4. KLONOPIN [Suspect]
  5. LUNESTA [Suspect]
     Route: 048
     Dates: start: 20060601, end: 20060601
  6. LUNESTA [Suspect]
     Route: 048
     Dates: start: 20070101
  7. CYMBALTA [Suspect]
  8. DURAGESIC-100 [Concomitant]
  9. PROVIGIL [Concomitant]

REACTIONS (3)
  - FATIGUE [None]
  - INSOMNIA [None]
  - SOMNOLENCE [None]
